FAERS Safety Report 5065886-9 (Version None)
Quarter: 2006Q3

REPORT INFORMATION
  Report Type: 
  Country: None (occurrence: None)
  Receive Date: 20060731
  Receipt Date: 20060321
  Transmission Date: 20061208
  Serious: Yes (Hospitalization, Other)
  Sender: FDA-Public Use
  Company Number: DE-BRISTOL-MYERS SQUIBB COMPANY-13321559

PATIENT
  Age: 21 Year
  Sex: Female
  Weight: 54 kg

DRUGS (3)
  1. ABILIFY [Suspect]
     Indication: SCHIZOPHRENIA
     Dosage: 30 MG 29-DEC-05 TO 08-MAR-06; 15 MG 21-MAR-06
     Dates: start: 20051229
  2. ZOLOFT [Suspect]
     Indication: DEPRESSION
     Dates: end: 20060308
  3. DIPIPERON [Suspect]
     Indication: SLEEP DISORDER
     Dates: end: 20060308

REACTIONS (3)
  - DRUG EXPOSURE DURING PREGNANCY [None]
  - PREGNANCY [None]
  - SPINA BIFIDA [None]
